FAERS Safety Report 17536428 (Version 3)
Quarter: 2020Q3

REPORT INFORMATION
  Report Type: Spontaneous
  Country: US (occurrence: US)
  Receive Date: 20200313
  Receipt Date: 20200708
  Transmission Date: 20201102
  Serious: Yes (Other)
  Sender: FDA-Public Use
  Company Number: US-009507513-1811USA009436

PATIENT
  Sex: Female
  Weight: 65 kg

DRUGS (2)
  1. STERILE DILUENT (WATER) [Suspect]
     Active Substance: WATER
     Dosage: UNK
     Dates: start: 20100430
  2. ZOSTAVAX [Suspect]
     Active Substance: VARICELLA-ZOSTER VIRUS STRAIN OKA/MERCK LIVE ANTIGEN
     Indication: PROPHYLAXIS
     Route: 065
     Dates: start: 20100430

REACTIONS (8)
  - Peripheral swelling [Unknown]
  - Vaccination failure [Unknown]
  - Swelling [Unknown]
  - Rhabdomyolysis [Unknown]
  - Anxiety [Unknown]
  - Herpes zoster [Unknown]
  - Sleep disorder [Unknown]
  - Insomnia [Unknown]

NARRATIVE: CASE EVENT DATE: 20110221
